FAERS Safety Report 10073243 (Version 1)
Quarter: 2014Q2

REPORT INFORMATION
  Report Type: Spontaneous
  Country: EE (occurrence: EE)
  Receive Date: 20140411
  Receipt Date: 20140411
  Transmission Date: 20141212
  Serious: Yes (Other)
  Sender: FDA-Public Use
  Company Number: EE-GE HEALTHCARE MEDICAL DIAGNOSTICS-OMPQ-E2B_00000059

PATIENT
  Age: 79 Year
  Sex: Female
  Weight: 56 kg

DRUGS (8)
  1. OMNIPAQUE [Suspect]
     Indication: PRODUCT USED FOR UNKNOWN INDICATION
     Route: 042
     Dates: start: 20140318, end: 20140318
  2. OMNIPAQUE [Suspect]
     Indication: DIAGNOSTIC PROCEDURE
  3. IMDUR [Concomitant]
     Indication: ANGINA PECTORIS
     Route: 048
  4. RANEXA [Concomitant]
     Indication: ANGINA PECTORIS
     Route: 048
  5. NEBILET [Concomitant]
     Indication: HYPERTENSION
     Route: 048
  6. TWYNSTA [Concomitant]
     Indication: HYPERTENSION
     Dosage: ONE TABLET CONTAINS 80 MG TELMISARTAN AND 5 MG AMLODIPINE
     Route: 048
  7. SORTIS [Concomitant]
     Route: 048
  8. PLAVIX [Concomitant]
     Indication: PERIPHERAL ARTERIAL OCCLUSIVE DISEASE
     Route: 048

REACTIONS (4)
  - Rash erythematous [Recovered/Resolved]
  - Pruritus generalised [Recovered/Resolved]
  - Agitation [Recovered/Resolved]
  - Tremor [Recovered/Resolved]
